FAERS Safety Report 13584626 (Version 1)
Quarter: 2017Q2

REPORT INFORMATION
  Report Type: Spontaneous
  Country: US (occurrence: US)
  Receive Date: 20170526
  Receipt Date: 20170526
  Transmission Date: 20170830
  Serious: No
  Sender: FDA-Public Use
  Company Number: US-BAYER-2017-099146

PATIENT
  Age: 29 Year
  Sex: Female

DRUGS (1)
  1. MIRENA [Suspect]
     Active Substance: LEVONORGESTREL
     Indication: CONTRACEPTION
     Dosage: 20 MCG/24HR, CONT
     Route: 015
     Dates: start: 201204

REACTIONS (5)
  - Dyspnoea [None]
  - Uterine pain [None]
  - Headache [None]
  - Uterine cervical pain [None]
  - Device use issue [None]

NARRATIVE: CASE EVENT DATE: 201704
